FAERS Safety Report 17112872 (Version 2)
Quarter: 2019Q4

REPORT INFORMATION
  Report Type: Spontaneous
  Country: BE (occurrence: BE)
  Receive Date: 20191204
  Receipt Date: 20191219
  Transmission Date: 20200122
  Serious: Yes (Hospitalization)
  Sender: FDA-Public Use
  Company Number: BE-CELGENEUS-BEL-20191109727

PATIENT
  Age: 47 Year
  Sex: Female

DRUGS (4)
  1. XENETIX [Concomitant]
     Active Substance: IOBITRIDOL
     Indication: PRODUCT USED FOR UNKNOWN INDICATION
     Route: 065
  2. ABRAXANE [Suspect]
     Active Substance: PACLITAXEL
     Indication: OVARIAN CANCER
     Route: 033
     Dates: start: 20191025
  3. MEDROL [Concomitant]
     Active Substance: METHYLPREDNISOLONE
     Indication: NAUSEA
     Dosage: 16 MILLIGRAM
     Route: 065
  4. LITICAN [Concomitant]
     Active Substance: ALIZAPRIDE HYDROCHLORIDE
     Indication: NAUSEA
     Dosage: 150 MILLIGRAM
     Route: 065

REACTIONS (3)
  - Intestinal obstruction [Recovered/Resolved]
  - Wound infection [Recovered/Resolved]
  - Large intestine perforation [Recovered/Resolved]

NARRATIVE: CASE EVENT DATE: 20191103
